FAERS Safety Report 17899211 (Version 1)
Quarter: 2020Q2

REPORT INFORMATION
  Report Type: Spontaneous
  Country: CA (occurrence: CA)
  Receive Date: 20200615
  Receipt Date: 20200615
  Transmission Date: 20200714
  Serious: Yes (Other)
  Sender: FDA-Public Use
  Company Number: CA-BAXTER-2020BAX012012

PATIENT
  Age: 14 Year
  Sex: Female

DRUGS (6)
  1. PROCYTOX (CYCLOPHOSPHAMIDE) 2000MG/VIAL [Suspect]
     Active Substance: CYCLOPHOSPHAMIDE
     Indication: MEDULLOBLASTOMA
     Dosage: DOSAGE FORM: NOT SPECIFIED
     Route: 065
  2. UROMITEXAN (MESNA INJECTION) 100MG/ML [Suspect]
     Active Substance: MESNA
     Indication: MEDULLOBLASTOMA
     Dosage: DOSAGE FORM: NOT SPECIFIED
     Route: 065
  3. LOMUSTINE. [Suspect]
     Active Substance: LOMUSTINE
     Indication: MEDULLOBLASTOMA
     Route: 065
  4. FILGRASTIM [Suspect]
     Active Substance: FILGRASTIM
     Indication: MEDULLOBLASTOMA
     Route: 065
  5. CISPLATIN. [Suspect]
     Active Substance: CISPLATIN
     Indication: MEDULLOBLASTOMA
     Route: 065
  6. VINBLASTINE [Suspect]
     Active Substance: VINBLASTINE
     Indication: MEDULLOBLASTOMA
     Route: 065

REACTIONS (6)
  - Peripheral motor neuropathy [Recovered/Resolved]
  - Hepatotoxicity [Recovered/Resolved]
  - Intentional product use issue [Recovered/Resolved]
  - Peripheral sensory neuropathy [Recovered/Resolved]
  - Ototoxicity [Recovered/Resolved]
  - Neuropathy peripheral [Recovered/Resolved]
